FAERS Safety Report 9070799 (Version 1)
Quarter: 2013Q1

REPORT INFORMATION
  Report Type: Report from Study
  Country: US (occurrence: US)
  Receive Date: 20130129
  Receipt Date: 20130129
  Transmission Date: 20140127
  Serious: No
  Sender: FDA-Public Use
  Company Number: US-ABBOTT-12P-163-0928726-00

PATIENT
  Age: 60 Year
  Sex: Female

DRUGS (15)
  1. HUMIRA 40 MG/0.8 ML PEN [Suspect]
     Indication: PSORIASIS
     Dates: start: 20120208
  2. ZANAFLEX [Concomitant]
     Indication: MUSCLE SPASMS
     Dosage: 2 IN AM, 1 IN AFTERNOON, 1 AT NIGHT
  3. ULTRAM [Concomitant]
     Indication: BACK PAIN
     Dosage: 2 IN AM, 2 IN AFTERNOON, 2 IN EVENING
  4. LYRICA [Concomitant]
     Indication: BACK PAIN
     Dosage: 1 IN AM AND 1 IN EVENING
  5. BACLOFENE [Concomitant]
     Indication: BACK PAIN
  6. BACLOFENE [Concomitant]
     Indication: MUSCLE SPASMS
  7. ELAVIL [Concomitant]
     Indication: INSOMNIA
     Dosage: IN EVENING
  8. REMERON [Concomitant]
     Indication: INSOMNIA
     Dosage: AT NIGHT
  9. REMERON [Concomitant]
     Indication: PAIN
  10. LIPITOR [Concomitant]
     Indication: BLOOD CHOLESTEROL
  11. FOLIC ACID [Concomitant]
     Indication: BLOOD CHOLESTEROL
  12. PERCOCET [Concomitant]
     Indication: BACK PAIN
  13. TRIAMCINOLONE [Concomitant]
     Indication: PSORIASIS
     Dosage: AT NIGHT TIME
     Route: 061
  14. CALCIPOTRIENE [Concomitant]
     Indication: PRODUCT USED FOR UNKNOWN INDICATION
     Dosage: DAY TIME
     Route: 061
  15. CHANTIX [Concomitant]
     Indication: SMOKING CESSATION THERAPY

REACTIONS (2)
  - Hair growth abnormal [Unknown]
  - Psoriasis [Not Recovered/Not Resolved]
